FAERS Safety Report 5990319-5 (Version None)
Quarter: 2008Q4

REPORT INFORMATION
  Report Type: 
  Country: None (occurrence: None)
  Receive Date: 20081211
  Receipt Date: 20081205
  Transmission Date: 20090506
  Serious: Yes (Hospitalization)
  Sender: FDA-Public Use
  Company Number: US-ASTRAZENECA-2008UW27017

PATIENT
  Age: 22715 Day
  Sex: Female

DRUGS (6)
  1. ROSUVASTATIN [Suspect]
     Route: 048
  2. ETANERCEPT [Suspect]
     Indication: RHEUMATOID ARTHRITIS
     Dosage: 25 MG TWO IN ONE WEEK
     Route: 058
     Dates: start: 19990319, end: 20080701
  3. ESTRADIOL [Suspect]
  4. KETOPROFEN [Suspect]
  5. PREDNISONE TAB [Suspect]
  6. SELENIUM [Suspect]

REACTIONS (1)
  - BREAST CANCER IN SITU [None]
